FAERS Safety Report 21642609 (Version 2)
Quarter: 2022Q4

REPORT INFORMATION
  Report Type: Report from Study
  Country: BR (occurrence: BR)
  Receive Date: 20221125
  Receipt Date: 20221221
  Transmission Date: 20230113
  Serious: Yes (Other)
  Sender: FDA-Public Use
  Company Number: BR-ELI_LILLY_AND_COMPANY-BR202211007939

PATIENT
  Sex: Female

DRUGS (3)
  1. FORTEO [Suspect]
     Active Substance: TERIPARATIDE
     Indication: Osteoporosis
     Dosage: 20 UG, DAILY
     Route: 058
     Dates: start: 20220921
  2. FORTEO [Suspect]
     Active Substance: TERIPARATIDE
     Dosage: 20 UG, UNKNOWN
     Route: 058
  3. FORTEO [Suspect]
     Active Substance: TERIPARATIDE
     Dosage: 0.5ML AND FURTHER REDUCED TO 0.25ML
     Route: 058

REACTIONS (7)
  - Blood pressure decreased [Unknown]
  - Judgement impaired [Unknown]
  - Altered state of consciousness [Unknown]
  - Sleep disorder [Unknown]
  - Illusion [Unknown]
  - Panic attack [Unknown]
  - Somnolence [Unknown]
